FAERS Safety Report 23279307 (Version 3)
Quarter: 2024Q2

REPORT INFORMATION
  Report Type: Spontaneous
  Country: US (occurrence: US)
  Receive Date: 20231209
  Receipt Date: 20240510
  Transmission Date: 20240716
  Serious: No
  Sender: FDA-Public Use
  Company Number: US-BRISTOL-MYERS SQUIBB COMPANY-2023-177982

PATIENT
  Age: 82 Year
  Sex: Male
  Weight: 90.26 kg

DRUGS (2)
  1. POMALYST [Suspect]
     Active Substance: POMALIDOMIDE
     Indication: Plasma cell myeloma
     Dosage: FREQUENCY: ONCE,21DAYS/DAILY FOR 21 DAYS ON, THEN 7 DAYS OFF
     Route: 048
  2. POMALYST [Suspect]
     Active Substance: POMALIDOMIDE
     Dosage: FREQUENCY: ONCE DAILY FOR 21 DAYS
     Route: 048

REACTIONS (2)
  - Platelet count decreased [Unknown]
  - Blood pressure decreased [Unknown]
